FAERS Safety Report 6887240-7 (Version None)
Quarter: 2010Q3

REPORT INFORMATION
  Report Type: 
  Country: None (occurrence: None)
  Receive Date: 20100730
  Receipt Date: 20100723
  Transmission Date: 20110219
  Serious: Yes (Other)
  Sender: FDA-Public Use
  Company Number: US-ASTRAZENECA-2009UW17572

PATIENT
  Age: 28 Year
  Sex: Female
  Weight: 95.3 kg

DRUGS (4)
  1. SEROQUEL [Suspect]
     Indication: BIPOLAR I DISORDER
     Dosage: 100-600 MG
     Route: 048
     Dates: start: 20000101
  2. SEROQUEL [Suspect]
     Dosage: 100-600 MG
     Route: 048
     Dates: start: 20081001
  3. TRAZODONE HCL [Concomitant]
     Dates: start: 20081001
  4. LAMICTAL [Concomitant]
     Dates: start: 20090301

REACTIONS (4)
  - DIABETES MELLITUS INADEQUATE CONTROL [None]
  - GESTATIONAL DIABETES [None]
  - OBESITY [None]
  - TYPE 2 DIABETES MELLITUS [None]
